FAERS Safety Report 9010172 (Version 2)
Quarter: 2013Q1

REPORT INFORMATION
  Report Type: Spontaneous
  Country: US (occurrence: US)
  Receive Date: 20130110
  Receipt Date: 20130115
  Transmission Date: 20140127
  Serious: Yes (Death, Other)
  Sender: FDA-Public Use
  Company Number: PHEH2013US000806

PATIENT
  Age: 70 Year
  Sex: Male
  Weight: 94 kg

DRUGS (5)
  1. EXJADE [Suspect]
     Indication: HAEMOCHROMATOSIS
     Dosage: 1500MG DAILY
     Route: 048
     Dates: start: 20121127, end: 20121203
  2. EXJADE [Suspect]
     Indication: IRON OVERLOAD
  3. VITAMIN B12 [Concomitant]
     Indication: VITAMIN B12 DEFICIENCY
     Dosage: 1000 UG, UNK
     Dates: start: 2011, end: 20121120
  4. MEDROL [Concomitant]
     Dosage: 4 MG, UNK
  5. LEVAQUIN [Concomitant]

REACTIONS (4)
  - Acute myeloid leukaemia [Fatal]
  - Febrile neutropenia [Unknown]
  - Pancytopenia [Unknown]
  - Blood glucose increased [Unknown]
